FAERS Safety Report 6913035-1 (Version None)
Quarter: 2010Q3

REPORT INFORMATION
  Report Type: 
  Country: None (occurrence: None)
  Receive Date: 20100806
  Receipt Date: 20090616
  Transmission Date: 20110219
  Serious: No
  Sender: FDA-Public Use
  Company Number: US-PFIZER INC-2009193713

PATIENT
  Sex: Female

DRUGS (7)
  1. GLUCOTROL XL [Suspect]
     Indication: DIABETES MELLITUS
     Dosage: 5 MG, 1X/DAY
     Dates: start: 20061101
  2. NEXIUM [Concomitant]
     Dosage: 40 MG, UNK
  3. ATROVENT [Concomitant]
     Dosage: UNK
     Route: 045
  4. SIMVASTATIN [Concomitant]
     Dosage: 80 MG, UNK
  5. LISINOPRIL [Concomitant]
     Dosage: 20 MG, UNK
  6. ATENOLOL [Concomitant]
     Dosage: 50 MG, UNK
  7. FUROSEMIDE [Concomitant]
     Dosage: 40 MG, UNK

REACTIONS (1)
  - BLOOD GLUCOSE FLUCTUATION [None]
